FAERS Safety Report 26021452 (Version 1)
Quarter: 2025Q4

REPORT INFORMATION
  Report Type: Spontaneous
  Country: US (occurrence: None)
  Receive Date: 20251109
  Receipt Date: 20251109
  Transmission Date: 20260118
  Serious: No
  Sender: FDA-CTU
  Company Number: None

PATIENT
  Sex: Female

DRUGS (1)
  1. ICATIBANT ACETATE [Suspect]
     Active Substance: ICATIBANT ACETATE
     Indication: Complement factor abnormal
     Dosage: ?30 MG/ML AS NEEDED SUBCUTANEOUS
     Route: 058

REACTIONS (3)
  - Gallbladder operation [None]
  - Abdominal pain upper [None]
  - Diarrhoea [None]
